FAERS Safety Report 7310391-X (Version None)
Quarter: 2011Q1

REPORT INFORMATION
  Report Type: 
  Country: None (occurrence: None)
  Receive Date: 20110224
  Receipt Date: 20100713
  Transmission Date: 20110831
  Serious: No
  Sender: FDA-Public Use
  Company Number: US-BRISTOL-MYERS SQUIBB COMPANY-15190390

PATIENT
  Age: 77 Year
  Sex: Female

DRUGS (2)
  1. GLUCOPHAGE [Suspect]
     Indication: TYPE 2 DIABETES MELLITUS
     Dosage: (CANNOT REMEMBER HER DOSAGE); TAKING FOR 6-7 YEARS.
  2. AMARYL [Concomitant]

REACTIONS (2)
  - VITAMIN B12 DEFICIENCY [None]
  - BLOOD GLUCOSE FLUCTUATION [None]
